FAERS Safety Report 4986174-2 (Version None)
Quarter: 2006Q2

REPORT INFORMATION
  Report Type: 
  Country: None (occurrence: None)
  Receive Date: 20060428
  Receipt Date: 20051219
  Transmission Date: 20061013
  Serious: Yes (Hospitalization, Disabling, Other)
  Sender: FDA-Public Use
  Company Number: US-MERCK-0512USA02798

PATIENT
  Age: 54 Year
  Sex: Female
  Weight: 68 kg

DRUGS (15)
  1. VIOXX [Suspect]
     Indication: INFLAMMATION
     Route: 048
     Dates: start: 20020823, end: 20031201
  2. VIOXX [Suspect]
     Indication: PAIN IN EXTREMITY
     Route: 048
     Dates: start: 20020823, end: 20031201
  3. LIPITOR [Concomitant]
     Indication: BLOOD CHOLESTEROL INCREASED
     Route: 065
     Dates: start: 20020101
  4. ZETIA [Concomitant]
     Route: 065
  5. PLAVIX [Concomitant]
     Route: 065
  6. ZOLOFT [Concomitant]
     Route: 065
  7. TOPROL-XL [Concomitant]
     Indication: HYPERTENSION
     Route: 065
     Dates: start: 20000703
  8. ASPIRIN [Concomitant]
     Indication: PROPHYLAXIS
     Route: 065
     Dates: start: 19990716
  9. PAXIL [Concomitant]
     Indication: DEPRESSION
     Route: 065
  10. MIRTAZAPINE [Concomitant]
     Route: 065
  11. ERYTHROMYCIN [Concomitant]
     Route: 065
  12. AMBIEN [Concomitant]
     Route: 065
  13. FIORICET W/ CODEINE [Concomitant]
     Route: 065
  14. XANAX [Concomitant]
     Route: 065
  15. DULCOLAX [Concomitant]
     Route: 065

REACTIONS (11)
  - BLOOD CHOLESTEROL INCREASED [None]
  - BLOOD TRIGLYCERIDES INCREASED [None]
  - CAROTID ARTERY OCCLUSION [None]
  - CAROTID ARTERY STENOSIS [None]
  - CEREBROVASCULAR ACCIDENT [None]
  - DEPRESSION [None]
  - DIABETES MELLITUS [None]
  - DYSPHAGIA [None]
  - HEADACHE [None]
  - HYPERTENSION [None]
  - MYOCARDIAL INFARCTION [None]
